FAERS Safety Report 6277625-4 (Version None)
Quarter: 2009Q3

REPORT INFORMATION
  Report Type: 
  Country: None (occurrence: None)
  Receive Date: 20090717
  Receipt Date: 20090717
  Transmission Date: 20100115
  Serious: Yes (Other)
  Sender: FDA-Public Use
  Company Number: None

PATIENT
  Sex: Female
  Weight: 77.1115 kg

DRUGS (4)
  1. TRAMADOL [Suspect]
     Indication: COMPLEX REGIONAL PAIN SYNDROME
     Dosage: 30 MG TWICE DAILY BUCCAL
     Route: 002
     Dates: start: 20070830, end: 20080115
  2. TRAMADOL [Suspect]
     Indication: NEURALGIA
     Dosage: 30 MG TWICE DAILY BUCCAL
     Route: 002
     Dates: start: 20070830, end: 20080115
  3. CYMBALTA [Suspect]
     Indication: COMPLEX REGIONAL PAIN SYNDROME
     Dosage: 60 MG TWICE DAILY BUCCAL
     Route: 002
     Dates: start: 20070815, end: 20080101
  4. CYMBALTA [Suspect]
     Indication: NEURALGIA
     Dosage: 60 MG TWICE DAILY BUCCAL
     Route: 002
     Dates: start: 20070815, end: 20080101

REACTIONS (4)
  - HYPERTENSION [None]
  - LIVEDO RETICULARIS [None]
  - SEROTONIN SYNDROME [None]
  - TACHYCARDIA [None]
